FAERS Safety Report 24957012 (Version 1)
Quarter: 2025Q1

REPORT INFORMATION
  Report Type: Spontaneous
  Country: FR (occurrence: FR)
  Receive Date: 20250211
  Receipt Date: 20250211
  Transmission Date: 20250409
  Serious: Yes (Life-Threatening)
  Sender: INTERCHEM
  Company Number: FR-HQ SPECIALTY-FR-2025INT000015

PATIENT
  Age: 3 Year
  Sex: Female
  Weight: 12.3 kg

DRUGS (14)
  1. DEXMEDETOMIDINE HYDROCHLORIDE [Suspect]
     Active Substance: DEXMEDETOMIDINE HYDROCHLORIDE
     Indication: Sedation
     Route: 065
     Dates: start: 20240318, end: 2024
  2. DEXMEDETOMIDINE HYDROCHLORIDE [Suspect]
     Active Substance: DEXMEDETOMIDINE HYDROCHLORIDE
     Dosage: 1.4 MICROGRAM/KILOGRAM, QH
     Route: 065
     Dates: start: 20240324, end: 20240401
  3. TACROLIMUS [Concomitant]
     Active Substance: TACROLIMUS
     Indication: Product used for unknown indication
     Route: 065
     Dates: start: 20240302, end: 2024
  4. TACROLIMUS [Concomitant]
     Active Substance: TACROLIMUS
     Route: 065
     Dates: start: 20240304, end: 2024
  5. TACROLIMUS [Concomitant]
     Active Substance: TACROLIMUS
     Route: 065
     Dates: start: 20240311, end: 2024
  6. TACROLIMUS [Concomitant]
     Active Substance: TACROLIMUS
     Route: 065
     Dates: start: 20240313, end: 2024
  7. TACROLIMUS [Concomitant]
     Active Substance: TACROLIMUS
     Route: 065
     Dates: start: 20240313, end: 2024
  8. TACROLIMUS [Concomitant]
     Active Substance: TACROLIMUS
     Route: 065
     Dates: start: 20240318, end: 2024
  9. TACROLIMUS [Concomitant]
     Active Substance: TACROLIMUS
     Route: 065
     Dates: start: 20240320, end: 2024
  10. TACROLIMUS [Concomitant]
     Active Substance: TACROLIMUS
     Route: 065
     Dates: start: 20240321, end: 2024
  11. TACROLIMUS [Concomitant]
     Active Substance: TACROLIMUS
     Route: 065
     Dates: start: 20240326, end: 2024
  12. TACROLIMUS [Concomitant]
     Active Substance: TACROLIMUS
     Route: 065
     Dates: start: 20240327, end: 2024
  13. TACROLIMUS [Concomitant]
     Active Substance: TACROLIMUS
     Route: 065
     Dates: start: 20240329, end: 2024
  14. TACROLIMUS [Concomitant]
     Active Substance: TACROLIMUS
     Route: 065
     Dates: start: 20240331, end: 2024

REACTIONS (2)
  - Product administered to patient of inappropriate age [Unknown]
  - Bradycardia [Recovered/Resolved]

NARRATIVE: CASE EVENT DATE: 20240318
